FAERS Safety Report 8548602-5 (Version None)
Quarter: 2012Q3

REPORT INFORMATION
  Report Type: 
  Country: None (occurrence: None)
  Receive Date: 20120720
  Receipt Date: 20120720
  Transmission Date: 20120928
  Serious: Yes (Life-Threatening, Hospitalization)
  Sender: FDA-Public Use
  Company Number: None

PATIENT
  Age: 60 Year
  Sex: Female
  Weight: 78 kg

DRUGS (1)
  1. TNKASE [Suspect]
     Indication: ISCHAEMIC STROKE
     Dosage: 25MG IV
     Route: 042
     Dates: start: 20120617, end: 20120617

REACTIONS (1)
  - HAEMORRHAGIC TRANSFORMATION STROKE [None]
